FAERS Safety Report 16776265 (Version 5)
Quarter: 2020Q1

REPORT INFORMATION
  Report Type: Spontaneous
  Country: US (occurrence: US)
  Receive Date: 20190905
  Receipt Date: 20200326
  Transmission Date: 20200409
  Serious: Yes (Hospitalization)
  Sender: FDA-Public Use
  Company Number: US-PFIZER INC-2019382821

PATIENT
  Age: 73 Year
  Sex: Female
  Weight: 54.42 kg

DRUGS (1)
  1. XELJANZ [Suspect]
     Active Substance: TOFACITINIB CITRATE
     Indication: COLITIS
     Dosage: 10 MG, 2X/DAY (DAY AND EVE)
     Dates: start: 2017

REACTIONS (3)
  - Condition aggravated [Not Recovered/Not Resolved]
  - Sinus disorder [Unknown]
  - Malaise [Unknown]

NARRATIVE: CASE EVENT DATE: 2017
